FAERS Safety Report 8913007 (Version 1)
Quarter: 2012Q4

REPORT INFORMATION
  Report Type: Spontaneous
  Country: US (occurrence: None)
  Receive Date: 20121114
  Receipt Date: 20121114
  Transmission Date: 20130627
  Serious: Yes (Hospitalization)
  Sender: FDA-Public Use
  Company Number: None

PATIENT
  Age: 34 Year
  Sex: Female
  Weight: 74.5 kg

DRUGS (1)
  1. TEMODAR [Suspect]
     Indication: OLIGODENDROGLIOMA
     Dosage: 200mg/m2 qd x5days q28days po
     Route: 048
     Dates: start: 20120815

REACTIONS (2)
  - Treatment noncompliance [None]
  - Therapy cessation [None]
